FAERS Safety Report 25044574 (Version 1)
Quarter: 2025Q1

REPORT INFORMATION
  Report Type: Other
  Country: CA (occurrence: CA)
  Receive Date: 20250306
  Receipt Date: 20250306
  Transmission Date: 20250409
  Serious: Yes (Other)
  Sender: BIOCON
  Company Number: CA-BIOCON BIOLOGICS LIMITED-BBL2025001121

PATIENT

DRUGS (1)
  1. HULIO [Suspect]
     Active Substance: ADALIMUMAB-FKJP
     Indication: Arthritis
     Dosage: 40 MILLIGRAM, Q2W (SOLUTION SUBCUTANEOUS)
     Route: 058

REACTIONS (3)
  - Surgery [Recovering/Resolving]
  - Furuncle [Recovering/Resolving]
  - Infection [Recovering/Resolving]
